FAERS Safety Report 25403418 (Version 2)
Quarter: 2025Q2

REPORT INFORMATION
  Report Type: Report from Study
  Country: US (occurrence: US)
  Receive Date: 20250605
  Receipt Date: 20250618
  Transmission Date: 20250716
  Serious: Yes (Hospitalization, Other)
  Sender: AIMMUNE
  Company Number: US-ZENPEP LLC-2025AIMT00529

PATIENT

DRUGS (2)
  1. ZENPEP [Suspect]
     Active Substance: PANCRELIPASE AMYLASE\PANCRELIPASE LIPASE\PANCRELIPASE PROTEASE
     Indication: Pancreatic failure
     Route: 048
  2. ZENPEP [Suspect]
     Active Substance: PANCRELIPASE AMYLASE\PANCRELIPASE LIPASE\PANCRELIPASE PROTEASE
     Route: 048

REACTIONS (4)
  - Spinal operation [Unknown]
  - Paralysis [Unknown]
  - Spinal fracture [Unknown]
  - Cerebrovascular accident [Unknown]
